FAERS Safety Report 25956722 (Version 1)
Quarter: 2025Q4

REPORT INFORMATION
  Report Type: Spontaneous
  Country: CL (occurrence: CL)
  Receive Date: 20251024
  Receipt Date: 20251024
  Transmission Date: 20260118
  Serious: Yes (Other)
  Sender: ABBVIE
  Company Number: CL-ABBVIE-6512539

PATIENT
  Age: 38 Year
  Sex: Female

DRUGS (2)
  1. UPADACITINIB [Suspect]
     Active Substance: UPADACITINIB
     Indication: Product used for unknown indication
     Dosage: INDUCTION DOSE
     Route: 048
  2. UPADACITINIB [Suspect]
     Active Substance: UPADACITINIB
     Indication: Product used for unknown indication
     Dosage: MAINTENANCE DOSE
     Route: 048

REACTIONS (2)
  - Metastatic neoplasm [Recovering/Resolving]
  - Crohn^s disease [Recovering/Resolving]
